FAERS Safety Report 17354031 (Version 1)
Quarter: 2020Q1

REPORT INFORMATION
  Report Type: Spontaneous
  Country: US (occurrence: US)
  Receive Date: 20200131
  Receipt Date: 20200131
  Transmission Date: 20200409
  Serious: Yes (Hospitalization)
  Sender: FDA-Public Use
  Company Number: US-MYLANLABS-2020M1011137

PATIENT
  Age: 66 Year
  Sex: Male
  Weight: 76 kg

DRUGS (10)
  1. METHYLPREDNISOLONE. [Suspect]
     Active Substance: METHYLPREDNISOLONE
     Indication: DRUG REACTION WITH EOSINOPHILIA AND SYSTEMIC SYMPTOMS
     Dosage: 1 MILLIGRAM/KILOGRAM, QD
     Route: 042
  2. IMMUNOGLOBULIN                     /00025201/ [Suspect]
     Active Substance: HUMAN IMMUNOGLOBULIN G
     Indication: HEPATITIS ACUTE
  3. METHYLPREDNISOLONE. [Suspect]
     Active Substance: METHYLPREDNISOLONE
     Dosage: DOSE DECREASED
     Route: 042
  4. VITAMIN K [Concomitant]
     Active Substance: PHYTONADIONE
     Indication: DRUG REACTION WITH EOSINOPHILIA AND SYSTEMIC SYMPTOMS
     Route: 048
  5. VITAMIN K [Concomitant]
     Active Substance: PHYTONADIONE
     Indication: HEPATITIS ACUTE
  6. SULPHAMETHOXAZOLE/TRIMETHOPRIM [Suspect]
     Active Substance: SULFAMETHOXAZOLE\TRIMETHOPRIM
     Indication: URINARY TRACT INFECTION
     Dosage: HE COMPLETED A 3-WEEK COURSE OF COTRIMOXAZOLE
     Route: 065
  7. ACETYLCYSTEINE. [Suspect]
     Active Substance: ACETYLCYSTEINE
     Dosage: 150 MILLIGRAM/KILOGRAM
     Route: 065
  8. IMMUNOGLOBULIN                     /00025201/ [Suspect]
     Active Substance: HUMAN IMMUNOGLOBULIN G
     Indication: DRUG REACTION WITH EOSINOPHILIA AND SYSTEMIC SYMPTOMS
     Route: 042
  9. ACETYLCYSTEINE. [Suspect]
     Active Substance: ACETYLCYSTEINE
     Indication: ACUTE HEPATIC FAILURE
     Dosage: BOLUS WAS ADMINISTERED OVER 1 HOUR
     Route: 065
  10. METHYLPREDNISOLONE. [Suspect]
     Active Substance: METHYLPREDNISOLONE
     Indication: HEPATITIS ACUTE
     Dosage: DOSE INCREASED
     Route: 042

REACTIONS (4)
  - Treatment failure [Unknown]
  - Hepatitis acute [Recovered/Resolved]
  - Drug reaction with eosinophilia and systemic symptoms [Recovering/Resolving]
  - Acute hepatic failure [Recovered/Resolved]
